FAERS Safety Report 16773642 (Version 1)
Quarter: 2019Q3

REPORT INFORMATION
  Report Type: Spontaneous
  Country: US (occurrence: US)
  Receive Date: 20190904
  Receipt Date: 20190904
  Transmission Date: 20191005
  Serious: No
  Sender: FDA-Public Use
  Company Number: US-ELI_LILLY_AND_COMPANY-US201908014071

PATIENT
  Sex: Female

DRUGS (1)
  1. TALTZ [Suspect]
     Active Substance: IXEKIZUMAB
     Indication: PRODUCT USED FOR UNKNOWN INDICATION
     Dosage: 80 MG
     Route: 065
     Dates: start: 20190822

REACTIONS (4)
  - Injection site pain [Unknown]
  - Pruritus generalised [Recovered/Resolved]
  - Insomnia [Unknown]
  - Dry skin [Unknown]

NARRATIVE: CASE EVENT DATE: 20190822
